FAERS Safety Report 25957271 (Version 1)
Quarter: 2025Q4

REPORT INFORMATION
  Report Type: Report from Study
  Country: US (occurrence: US)
  Receive Date: 20251024
  Receipt Date: 20251024
  Transmission Date: 20260117
  Serious: Yes (Hospitalization, Other)
  Sender: MARINUS PHARMACEUTICALS
  Company Number: US-MARINUS PHARMACEUTICALS, INC.-MAR2025000260

PATIENT

DRUGS (4)
  1. GANAXOLONE [Suspect]
     Active Substance: GANAXOLONE
     Indication: Epilepsy
     Dosage: WEEK 1 :  2 ML
     Route: 048
  2. GANAXOLONE [Suspect]
     Active Substance: GANAXOLONE
     Dosage: WEEK 2: 4 ML
  3. GANAXOLONE [Suspect]
     Active Substance: GANAXOLONE
     Dosage: WEEK 3: 6 ML
     Route: 048
  4. GANAXOLONE [Suspect]
     Active Substance: GANAXOLONE
     Dosage: WEEK 4: 8 ML
     Route: 048

REACTIONS (2)
  - Tracheostomy [Unknown]
  - Seizure [Unknown]
